FAERS Safety Report 6442099-7 (Version None)
Quarter: 2009Q4

REPORT INFORMATION
  Report Type: 
  Country: None (occurrence: None)
  Receive Date: 20091116
  Receipt Date: 20091103
  Transmission Date: 20100525
  Serious: Yes (Other)
  Sender: FDA-Public Use
  Company Number: PHHY2009CA30107

PATIENT
  Sex: Female

DRUGS (1)
  1. SANDOSTATIN LAR [Suspect]
     Indication: CARCINOID SYNDROME
     Dosage: 20 MG, EVERY 4 WEEKS
     Route: 030
     Dates: start: 20080618

REACTIONS (14)
  - BLOOD GLUCOSE INCREASED [None]
  - BLOOD PRESSURE INCREASED [None]
  - DYSPNOEA [None]
  - DYSPNOEA EXERTIONAL [None]
  - FATIGUE [None]
  - FLATULENCE [None]
  - GASTROINTESTINAL DISORDER [None]
  - HYSTERECTOMY [None]
  - NAUSEA [None]
  - PELVIC DISCOMFORT [None]
  - UTERINE NEOPLASM [None]
  - VAGINAL HAEMORRHAGE [None]
  - VIRAL INFECTION [None]
  - WEIGHT DECREASED [None]
